FAERS Safety Report 7031344-5 (Version None)
Quarter: 2010Q4

REPORT INFORMATION
  Report Type: 
  Country: None (occurrence: None)
  Receive Date: 20101006
  Receipt Date: 20101004
  Transmission Date: 20110411
  Serious: Yes (Hospitalization)
  Sender: FDA-Public Use
  Company Number: US-CVT-100614

PATIENT

DRUGS (8)
  1. RANEXA [Suspect]
     Indication: ANGINA PECTORIS
     Dosage: 500 MG, BID
     Route: 048
     Dates: start: 20100301
  2. GLUCOTROL XL [Concomitant]
  3. ASPIRIN [Concomitant]
  4. GLUCOPHAGE [Concomitant]
  5. ACTOS [Concomitant]
  6. VALSARTAN [Concomitant]
  7. CRESTOR [Concomitant]
  8. PLAVIX [Concomitant]

REACTIONS (1)
  - PULMONARY FIBROSIS [None]
